FAERS Safety Report 9732573 (Version 1)
Quarter: 2013Q4

REPORT INFORMATION
  Report Type: Spontaneous
  Country: US (occurrence: US)
  Receive Date: 20131205
  Receipt Date: 20131205
  Transmission Date: 20140711
  Serious: No
  Sender: FDA-Public Use
  Company Number: US-PFIZER INC-2013345319

PATIENT
  Age: 49 Year
  Sex: Female
  Weight: 63.5 kg

DRUGS (4)
  1. PANTOPRAZOLE [Suspect]
     Indication: GASTROOESOPHAGEAL REFLUX DISEASE
     Dosage: 40 MG, 2X/DAY
     Route: 048
     Dates: start: 20120419, end: 201311
  2. CLONAZEPAM [Concomitant]
     Dosage: 0.5 MG, UNK
  3. IRON [Concomitant]
     Dosage: UNK, 1X/DAY
  4. PROGESTERONE [Concomitant]
     Dosage: UNK,1X/DAY

REACTIONS (4)
  - Malaise [Unknown]
  - Drug ineffective [Unknown]
  - Abdominal pain upper [Unknown]
  - Gastroenteritis [Unknown]
